FAERS Safety Report 8686033 (Version 2)
Quarter: 2014Q1

REPORT INFORMATION
  Report Type: Spontaneous
  Country: US (occurrence: US)
  Receive Date: 20120726
  Receipt Date: 20140207
  Transmission Date: 20141002
  Serious: No
  Sender: FDA-Public Use
  Company Number: US-ASTRAZENECA-2011SE59364

PATIENT
  Age: 50 Year
  Sex: Female
  Weight: 56.7 kg

DRUGS (11)
  1. SEROQUEL [Suspect]
     Indication: ANXIETY
     Route: 048
  2. SEROQUEL [Suspect]
     Indication: DEPRESSION
     Route: 048
  3. SEROQUEL [Suspect]
     Indication: ANXIETY
     Route: 048
     Dates: start: 2011, end: 20140120
  4. SEROQUEL [Suspect]
     Indication: DEPRESSION
     Route: 048
     Dates: start: 2011, end: 20140120
  5. SEROQUEL [Suspect]
     Indication: ANXIETY
     Route: 048
     Dates: start: 20140127
  6. SEROQUEL [Suspect]
     Indication: DEPRESSION
     Route: 048
     Dates: start: 20140127
  7. XANAX [Concomitant]
     Indication: ANXIETY
     Dosage: DAILY
     Route: 048
  8. CITALOPRAM [Concomitant]
     Indication: DEPRESSION
     Dosage: DAILY
     Route: 048
  9. VISTARIL [Concomitant]
     Indication: ANXIETY
     Dosage: PRN
     Route: 048
  10. INDERAL [Concomitant]
     Indication: HEART RATE ABNORMAL
     Dosage: PRN
     Route: 048
  11. INDERAL [Concomitant]
     Indication: ANXIETY
     Dosage: PRN
     Route: 048

REACTIONS (3)
  - Insomnia [Unknown]
  - Wrong technique in drug usage process [Unknown]
  - Drug dose omission [Unknown]
